FAERS Safety Report 7678153-1 (Version None)
Quarter: 2011Q3

REPORT INFORMATION
  Report Type: 
  Country: None (occurrence: None)
  Receive Date: 20110811
  Receipt Date: 20110802
  Transmission Date: 20111222
  Serious: Yes (Other)
  Sender: FDA-Public Use
  Company Number: SK-JNJFOC-20110801631

PATIENT
  Sex: Female
  Weight: 84.5 kg

DRUGS (3)
  1. HYDROCORTISONE [Concomitant]
     Indication: PREMEDICATION
     Route: 042
     Dates: start: 20110722
  2. REMICADE [Suspect]
     Indication: CROHN'S DISEASE
     Route: 042
     Dates: start: 20100112, end: 20110722
  3. PENTASA [Concomitant]
     Indication: CROHN'S DISEASE
     Route: 065

REACTIONS (6)
  - INFUSION RELATED REACTION [None]
  - DYSPNOEA [None]
  - PERIPHERAL COLDNESS [None]
  - RASH [None]
  - PRURITUS [None]
  - MALAISE [None]
